FAERS Safety Report 5801659-4 (Version None)
Quarter: 2008Q3

REPORT INFORMATION
  Report Type: 
  Country: None (occurrence: None)
  Receive Date: 20080707
  Receipt Date: 20080627
  Transmission Date: 20090109
  Serious: Yes (Hospitalization)
  Sender: FDA-Public Use
  Company Number: B0503459A

PATIENT
  Age: 47 Year
  Sex: Male

DRUGS (1)
  1. KIVEXA [Suspect]
     Indication: HIV INFECTION
     Dosage: 1TAB PER DAY
     Route: 048
     Dates: start: 20071107, end: 20071121

REACTIONS (11)
  - ABDOMINAL PAIN [None]
  - CHEST DISCOMFORT [None]
  - CHOLESTASIS [None]
  - COUGH [None]
  - DIARRHOEA [None]
  - HEPATOCELLULAR INJURY [None]
  - LYMPHOPENIA [None]
  - PRURITUS [None]
  - PYREXIA [None]
  - RASH MACULO-PAPULAR [None]
  - THROMBOCYTOPENIA [None]
